FAERS Safety Report 25256752 (Version 1)
Quarter: 2025Q2

REPORT INFORMATION
  Report Type: Report from Study
  Country: US (occurrence: US)
  Receive Date: 20250430
  Receipt Date: 20250430
  Transmission Date: 20250716
  Serious: No
  Sender: SANDOZ
  Company Number: US-NOVPHSZ-GXBR2017US001942

PATIENT
  Age: 62 Year
  Sex: Female

DRUGS (9)
  1. OMNITROPE [Suspect]
     Active Substance: SOMATROPIN
     Dosage: 1.2 MG, QD (SOLUTION FOR INFUSION)
     Route: 058
  2. OMNITROPE [Suspect]
     Active Substance: SOMATROPIN
     Dosage: 1.2 MG, QD (SOLUTION FOR INFUSION)
     Route: 058
  3. OMNITROPE [Suspect]
     Active Substance: SOMATROPIN
     Indication: Dwarfism
     Dosage: 0.6 MG, QD
     Route: 058
     Dates: start: 201703
  4. OMNITROPE [Suspect]
     Active Substance: SOMATROPIN
     Indication: Dwarfism
     Dosage: 0.6 MG, QD
     Route: 058
     Dates: start: 201703
  5. OMNITROPE [Suspect]
     Active Substance: SOMATROPIN
     Route: 058
  6. OMNITROPE [Suspect]
     Active Substance: SOMATROPIN
     Route: 058
  7. LIOTHYRONINE [Concomitant]
     Active Substance: LIOTHYRONINE
     Indication: Product used for unknown indication
     Route: 065
  8. SYNTHROID [Concomitant]
     Active Substance: LEVOTHYROXINE SODIUM
     Indication: Product used for unknown indication
     Route: 065
  9. VITAMIN D NOS [Concomitant]
     Active Substance: CHOLECALCIFEROL\ERGOCALCIFEROL
     Indication: Product used for unknown indication
     Route: 065

REACTIONS (6)
  - Headache [Not Recovered/Not Resolved]
  - Drug administered in wrong device [Not Recovered/Not Resolved]
  - Incorrect dosage administered [Not Recovered/Not Resolved]
  - Device defective [Unknown]
  - Device use issue [Unknown]
  - Circumstance or information capable of leading to medication error [Unknown]

NARRATIVE: CASE EVENT DATE: 20170301
